FAERS Safety Report 9596189 (Version 4)
Quarter: 2014Q2

REPORT INFORMATION
  Report Type: Report from Study
  Country: US (occurrence: US)
  Receive Date: 20131004
  Receipt Date: 20140606
  Transmission Date: 20141212
  Serious: Yes (Other)
  Sender: FDA-Public Use
  Company Number: US-PFIZER INC-2013281335

PATIENT
  Age: 60 Year
  Sex: Female

DRUGS (7)
  1. INOTUZUMAB OZOGAMICIN [Suspect]
     Indication: ACUTE LYMPHOCYTIC LEUKAEMIA
     Dosage: 1.3 MG/M2, CYCLIC (OVER 1 HOUR ON DAY 3)
     Route: 042
     Dates: start: 20130718
  2. DEXAMETHASONE SODIUM PHOSPHATE [Suspect]
     Dosage: 20 MG, CYCLIC (DAILY FOR 4 DAYS ON DAY 1-4 AND DAYS 11-14)
     Route: 042
  3. RITUXIMAB [Suspect]
     Dosage: 375 MG/M2, CYCLIC (ON DAY 2 AND DAY 8 (CYCLE 1 AND 3 ONLY))
     Route: 042
  4. PEGFILGRASTIM [Suspect]
     Dosage: 6 MG, CYCLIC (OR FILGRASTIM 5-10 MCG/KG DAILY) ON DAY 4)
     Route: 058
  5. VINCRISTINE [Suspect]
     Dosage: 2 MG, CYCLIC (DAY 1 AND DAY 8)
     Route: 042
  6. MESNA [Suspect]
     Dosage: 300 MG/M2, CYCLIC (DAILY OVER 24 HOURS FOR 3 DAYS ON DAYS 1-3)
     Route: 042
  7. CYCLOPHOSPHAMIDE [Suspect]
     Dosage: 150 MG/M2, CYCLIC (OVER 3 HOURS TWICE A DAY ON DAYS 1-3)
     Route: 042

REACTIONS (1)
  - Hypotension [Recovered/Resolved]
